FAERS Safety Report 8094135-2 (Version None)
Quarter: 2012Q1

REPORT INFORMATION
  Report Type: 
  Country: None (occurrence: None)
  Receive Date: 20120130
  Receipt Date: 20120130
  Transmission Date: 20120608
  Serious: Yes (Hospitalization)
  Sender: FDA-Public Use
  Company Number: None

PATIENT
  Age: 86 Year
  Sex: Male
  Weight: 64 kg

DRUGS (2)
  1. ASPIRIN [Concomitant]
     Dosage: 81 MG
     Route: 048
     Dates: start: 20110601, end: 20110715
  2. PRADAXA [Suspect]
     Indication: ATRIAL FIBRILLATION
     Dosage: 150 MG
     Route: 048
     Dates: start: 20110601, end: 20110715

REACTIONS (8)
  - INTERNATIONAL NORMALISED RATIO INCREASED [None]
  - ISCHAEMIC CARDIOMYOPATHY [None]
  - BRONCHIAL HAEMORRHAGE [None]
  - PNEUMONIA [None]
  - CHRONIC OBSTRUCTIVE PULMONARY DISEASE [None]
  - HAEMOPTYSIS [None]
  - THROMBOCYTOPENIA [None]
  - CARDIAC FAILURE CONGESTIVE [None]
